FAERS Safety Report 16697932 (Version 1)
Quarter: 2019Q3

REPORT INFORMATION
  Report Type: Report from Study
  Country: CO (occurrence: CO)
  Receive Date: 20190813
  Receipt Date: 20190813
  Transmission Date: 20191004
  Serious: Yes (Hospitalization, Other)
  Sender: FDA-Public Use
  Company Number: CO-ASTELLAS-2018US039197

PATIENT
  Age: 3 Year
  Sex: Male
  Weight: 12 kg

DRUGS (9)
  1. TACROLIMUS. [Suspect]
     Active Substance: TACROLIMUS
     Indication: RENAL TRANSPLANT
     Route: 048
  2. METHYLPREDNISOLONE                 /00049602/ [Suspect]
     Active Substance: METHYLPREDNISOLONE
     Indication: KIDNEY TRANSPLANT REJECTION
     Dosage: UNK UNK, UNKNOWN FREQ.
     Route: 065
  3. CARVEDILOL. [Concomitant]
     Active Substance: CARVEDILOL
     Indication: HYPERTENSION
     Route: 065
  4. TACROLIMUS. [Suspect]
     Active Substance: TACROLIMUS
     Indication: RENAL TRANSPLANT
     Route: 048
     Dates: start: 20180605, end: 20180729
  5. PREDNISOLONE. [Concomitant]
     Active Substance: PREDNISOLONE
     Indication: RENAL TRANSPLANT
     Dosage: 3.125 MG, ONCE DAILY (HALF TABLET OF 6.25 MG)
     Route: 048
     Dates: start: 20180605
  6. PREDNISOLONE. [Concomitant]
     Active Substance: PREDNISOLONE
     Route: 048
     Dates: start: 20180605
  7. TACROLIMUS. [Suspect]
     Active Substance: TACROLIMUS
     Indication: RENAL TRANSPLANT
     Route: 048
     Dates: start: 20190501
  8. MYCOPHENOLATE [Concomitant]
     Active Substance: MYCOPHENOLIC ACID
     Indication: RENAL TRANSPLANT
     Route: 048
     Dates: start: 20180605
  9. TACROLIMUS. [Suspect]
     Active Substance: TACROLIMUS
     Route: 048
     Dates: end: 20190430

REACTIONS (9)
  - Kidney transplant rejection [Recovering/Resolving]
  - Immunosuppressant drug level increased [Recovering/Resolving]
  - Immunosuppressant drug level decreased [Recovering/Resolving]
  - Transaminases increased [Unknown]
  - Bacterial infection [Recovered/Resolved]
  - Bacterial infection [Not Recovered/Not Resolved]
  - Hepatotoxicity [Recovering/Resolving]
  - Immunodeficiency [Unknown]
  - Device related infection [Unknown]

NARRATIVE: CASE EVENT DATE: 20180729
